FAERS Safety Report 12855360 (Version 2)
Quarter: 2016Q4

REPORT INFORMATION
  Report Type: Spontaneous
  Country: JP (occurrence: JP)
  Receive Date: 20161017
  Receipt Date: 20161028
  Transmission Date: 20170207
  Serious: Yes (Hospitalization, Other)
  Sender: FDA-Public Use
  Company Number: PHHY2016JP140156

PATIENT
  Age: 69 Year
  Sex: Male

DRUGS (2)
  1. IRINOTECAN [Suspect]
     Active Substance: IRINOTECAN
     Indication: NEUROENDOCRINE CARCINOMA
     Dosage: 90 MG/BODY INTRAVENOUS INFUSION, DAY 1, 8, 15/Q4W
     Route: 042
  2. CISPLATIN. [Suspect]
     Active Substance: CISPLATIN
     Indication: NEUROENDOCRINE CARCINOMA
     Dosage: 90 MG/BODY INTRAVENOUS INFUSION, DAY 1/Q4W
     Route: 042

REACTIONS (3)
  - Thrombocytopenia [Unknown]
  - Peripheral artery occlusion [Recovered/Resolved]
  - Decreased appetite [Unknown]
